FAERS Safety Report 24989765 (Version 2)
Quarter: 2025Q1

REPORT INFORMATION
  Report Type: Spontaneous
  Country: US (occurrence: US)
  Receive Date: 20250220
  Receipt Date: 20250328
  Transmission Date: 20250409
  Serious: Yes (Hospitalization, Other)
  Sender: AMGEN
  Company Number: US-AMGEN-USASP2025032370

PATIENT
  Age: 58 Year
  Sex: Male

DRUGS (27)
  1. KRYSTEXXA [Suspect]
     Active Substance: PEGLOTICASE
     Indication: Gout
     Dosage: 8 MILLIGRAM PER MILLILITRE, Q2WK
     Route: 040
  2. METHOTREXATE [Suspect]
     Active Substance: METHOTREXATE
     Indication: Product used for unknown indication
     Dosage: 2.5 MILLIGRAM, QWK (TABLET 10 MG (4 TABS X 2.5MG) ORALLY ONCE WEEKLY)
     Route: 048
  3. PROPRANOLOL HYDROCHLORIDE [Concomitant]
     Active Substance: PROPRANOLOL HYDROCHLORIDE
     Dosage: 40 MILLIGRAM, BID (1 TABLET)
     Route: 048
  4. ZOLPIDEM TARTRATE [Concomitant]
     Active Substance: ZOLPIDEM TARTRATE
     Dosage: 5 MILLIGRAM, QD (AT BED TIME AS NEEDED)
     Route: 048
  5. TRAZODONE HCL [Concomitant]
     Active Substance: TRAZODONE HYDROCHLORIDE
     Dosage: 50 MILLIGRAM, QD (1 TABLET BEDTIME AS NEEDED ORALLY ONCE A DAY)
     Route: 048
  6. PERCOCET [Concomitant]
     Active Substance: ACETAMINOPHEN\OXYCODONE HYDROCHLORIDE
     Route: 048
  7. PREGABALIN [Concomitant]
     Active Substance: PREGABALIN
     Dosage: 150 MILLIGRAM, TID
     Route: 048
  8. SERTRALINE HYDROCHLORIDE [Concomitant]
     Active Substance: SERTRALINE HYDROCHLORIDE
     Dosage: 100 MILLIGRAM, QD (1.5 TABLET)
     Route: 048
  9. AURYXIA [Concomitant]
     Active Substance: TETRAFERRIC TRICITRATE DECAHYDRATE
     Dosage: UNK UNK, BID (1 GM 210 MG (FE)1 TABLET WITH A MEAL)
     Route: 048
  10. KERENDIA [Concomitant]
     Active Substance: FINERENONE
     Dosage: 10 MILLIGRAM, QD (1 TABLET)
     Route: 048
  11. VITAMIN D [Concomitant]
     Active Substance: VITAMIN D NOS
     Dosage: 1.25 MILLIGRAM, Q2WK ((S0000 UT) CAPSULE TAKE ONE CAPSULE BY MOUTH TWICE WEEK)
     Route: 048
  12. DOCUSATE SODIUM [Concomitant]
     Active Substance: DOCUSATE SODIUM
     Dosage: 100 MILLIGRAM, BID (2 CAPSULES)
     Route: 048
  13. LISINOPRIL [Concomitant]
     Active Substance: LISINOPRIL
     Dosage: 10 MILLIGRAM, BID (1 TABLET)
     Route: 048
  14. ASPIRIN [Concomitant]
     Active Substance: ASPIRIN
     Dosage: 81 MILLIGRAM, QD (LOW DOSE DELAYED RELEASE 1 TABLET)
     Route: 048
  15. FUROSEMIDE [Concomitant]
     Active Substance: FUROSEMIDE
     Dosage: 20 MILLIGRAM, QD (TAKE 1 TABLET)
     Route: 048
  16. COLCHICINE [Concomitant]
     Active Substance: COLCHICINE
     Dosage: 0.6 MILLIGRAM, QD
     Route: 048
  17. LIPITOR [Concomitant]
     Active Substance: ATORVASTATIN CALCIUM
     Dosage: 40 MILLIGRAM, QHS (1 TABLET DIALY AT NIGHT)
     Route: 048
  18. PANTOPRAZOLE SODIUM [Concomitant]
     Active Substance: PANTOPRAZOLE SODIUM
     Dosage: 40 MILLIGRAM, QD (DELAYED RELEASE 1 TABLET)
     Route: 048
  19. FOLIC ACID [Concomitant]
     Active Substance: FOLIC ACID
     Dosage: 1 MILLIGRAM, QD (BY MOUTH ONCE A DAY)
     Route: 048
  20. FARXIGA [Concomitant]
     Active Substance: DAPAGLIFLOZIN PROPANEDIOL
     Dosage: 10 MILLIGRAM, QD (1 TABLET)
     Route: 048
  21. MOUNJARO [Concomitant]
     Active Substance: TIRZEPATIDE
     Dosage: UNK UNK, QWK (10 MG/O.5ML SOLUTION PEN-INJECTOR 10 MG SUBEUTANEOUS ONCE WEEKLY)
     Route: 058
  22. LOKELMA [Concomitant]
     Active Substance: SODIUM ZIRCONIUM CYCLOSILICATE
     Route: 048
  23. XANAX [Concomitant]
     Active Substance: ALPRAZOLAM
     Dosage: 0.25 MILLIGRAM, TID
     Route: 048
  24. AMITIZA [Concomitant]
     Active Substance: LUBIPROSTONE
     Route: 048
  25. LACTULOSE [Concomitant]
     Active Substance: LACTULOSE
     Dosage: 10 GRAM, BID (1 PACKET AS NEEDED ORALLY TWICE A DAY)
     Route: 048
  26. IBUPROFEN [Concomitant]
     Active Substance: IBUPROFEN
     Dosage: 400 MILLIGRAM, QD (1 TABLET WITH FOOD OR MILK AS NEEDED ORALLY DAILY)
     Route: 048
  27. CELLCEPT [Concomitant]
     Active Substance: MYCOPHENOLATE MOFETIL
     Dosage: 500 MILLIGRAM, BID (1 TABLET ORALLY TWICE A DAY, 500 MG TABLET 2 TABLET ORALLY TWICE A DAY)
     Route: 048

REACTIONS (9)
  - Acute kidney injury [Unknown]
  - Myelosuppression [Unknown]
  - Ill-defined disorder [Unknown]
  - Pancytopenia [Unknown]
  - Chronic kidney disease [Unknown]
  - Type 2 diabetes mellitus [Unknown]
  - Diabetic nephropathy [Unknown]
  - Essential hypertension [Unknown]
  - Nephrogenic anaemia [Unknown]
